FAERS Safety Report 11116465 (Version 15)
Quarter: 2018Q3

REPORT INFORMATION
  Report Type: Report from Study
  Country: BR (occurrence: BR)
  Receive Date: 20150515
  Receipt Date: 20180816
  Transmission Date: 20181010
  Serious: Yes (Life-Threatening, Hospitalization, Other)
  Sender: FDA-Public Use
  Company Number: BR-GLAXOSMITHKLINE-BR2015065717

PATIENT
  Age: 21 Year
  Sex: Female
  Weight: 85 kg

DRUGS (2)
  1. BLINDED BELIMUMAB [Suspect]
     Active Substance: BELIMUMAB
     Indication: SYSTEMIC LUPUS ERYTHEMATOSUS
     Dosage: UNK, CYC
     Route: 042
     Dates: start: 20150319, end: 20150330
  2. BLINDED PLACEBO [Suspect]
     Active Substance: INVESTIGATIONAL PRODUCT
     Indication: SYSTEMIC LUPUS ERYTHEMATOSUS
     Dosage: UNK, CYC
     Route: 042
     Dates: start: 20150319, end: 20150330

REACTIONS (1)
  - Meningitis [Recovered/Resolved]

NARRATIVE: CASE EVENT DATE: 20150424
